FAERS Safety Report 5725495-2 (Version None)
Quarter: 2008Q2

REPORT INFORMATION
  Report Type: 
  Country: None (occurrence: None)
  Receive Date: 20080501
  Receipt Date: 20080421
  Transmission Date: 20081010
  Serious: Yes (Hospitalization)
  Sender: FDA-Public Use
  Company Number: US-JNJFOC-20071206153

PATIENT
  Sex: Male
  Weight: 77.11 kg

DRUGS (14)
  1. FENTANYL TRANSDERMAL SYSTEM [Suspect]
     Route: 062
  2. FENTANYL TRANSDERMAL SYSTEM [Suspect]
     Indication: SCIATICA
     Route: 062
  3. FENTANYL TRANSDERMAL SYSTEM [Suspect]
     Indication: BACK PAIN
     Route: 062
  4. ASPIRIN [Concomitant]
     Route: 048
  5. METFORMIN HCL [Concomitant]
     Indication: DIABETES MELLITUS
     Route: 048
  6. METOPROLOL TARTRATE [Concomitant]
     Indication: BLOOD PRESSURE
     Route: 048
  7. ISOSORBIDE DINITRATE [Concomitant]
     Indication: BLOOD PRESSURE
     Route: 048
  8. LISINOPRIL [Concomitant]
     Indication: BLOOD PRESSURE
     Route: 048
  9. INSULIN [Concomitant]
     Route: 058
  10. INSULIN [Concomitant]
     Indication: DIABETES MELLITUS
     Route: 058
  11. CLONIDINE HCL [Concomitant]
     Route: 048
  12. HYDROCHLOROTHIAZIDE [Concomitant]
     Route: 048
  13. FELODIPINE [Concomitant]
     Indication: BLOOD PRESSURE
     Route: 048
  14. SIMVASTATIN [Concomitant]
     Indication: BLOOD PRESSURE
     Route: 048

REACTIONS (4)
  - CONSTIPATION [None]
  - DRUG INEFFECTIVE [None]
  - DYSPNOEA [None]
  - UNEVALUABLE EVENT [None]
